FAERS Safety Report 9419268 (Version 1)
Quarter: 2013Q3

REPORT INFORMATION
  Report Type: Spontaneous
  Country: US (occurrence: US)
  Receive Date: 20130725
  Receipt Date: 20130725
  Transmission Date: 20140515
  Serious: No
  Sender: FDA-Public Use
  Company Number: US-GLAXOSMITHKLINE-A0995109A

PATIENT
  Age: 59 Year
  Sex: Female

DRUGS (12)
  1. LAMICTAL [Suspect]
     Indication: DEPRESSION
     Dosage: 50MG TWICE PER DAY
     Route: 048
     Dates: start: 20120816, end: 20120823
  2. SEROQUEL XR [Concomitant]
  3. LASIX [Concomitant]
     Dosage: 10MG PER DAY
  4. POTASSIUM [Concomitant]
     Dosage: 20MEQ PER DAY
  5. LISINOPRIL [Concomitant]
     Dosage: 100MG TWICE PER DAY
  6. METOPROLOL [Concomitant]
  7. SPIRONOLACTONE [Concomitant]
  8. ASPIRIN [Concomitant]
  9. VITAMIN E [Concomitant]
  10. NIACIN [Concomitant]
  11. FISH OIL [Concomitant]
  12. GARLIQUE [Concomitant]

REACTIONS (2)
  - Muscular weakness [Recovered/Resolved]
  - Fall [Recovered/Resolved]
